FAERS Safety Report 15654436 (Version 2)
Quarter: 2018Q4

REPORT INFORMATION
  Report Type: Spontaneous
  Country: BR (occurrence: BR)
  Receive Date: 20181126
  Receipt Date: 20181207
  Transmission Date: 20190205
  Serious: Yes (Hospitalization, Disabling)
  Sender: FDA-Public Use
  Company Number: BR-009507513-1811BRA009684

PATIENT
  Sex: Female

DRUGS (1)
  1. MAXALT [Suspect]
     Active Substance: RIZATRIPTAN BENZOATE
     Indication: MIGRAINE
     Dosage: UNK
     Route: 048
     Dates: start: 2010, end: 201804

REACTIONS (5)
  - Impaired quality of life [Unknown]
  - Migraine [Not Recovered/Not Resolved]
  - Product supply issue [Unknown]
  - Migraine [Unknown]
  - Migraine [Unknown]

NARRATIVE: CASE EVENT DATE: 2010
